FAERS Safety Report 7902146-X (Version None)
Quarter: 2011Q4

REPORT INFORMATION
  Report Type: 
  Country: None (occurrence: None)
  Receive Date: 20111108
  Receipt Date: 20111103
  Transmission Date: 20120403
  Serious: Yes (Other)
  Sender: FDA-Public Use
  Company Number: US-BAYER-2011-106997

PATIENT
  Sex: Female

DRUGS (2)
  1. MIRENA [Suspect]
     Indication: CONTRACEPTION
     Dosage: 20 MCG/24HR, CONT
     Route: 015
     Dates: start: 20100815
  2. MIRENA [Suspect]
     Indication: MENORRHAGIA

REACTIONS (7)
  - HYPOAESTHESIA [None]
  - ARTHRALGIA [None]
  - DEVICE BREAKAGE [None]
  - PARAESTHESIA [None]
  - JOINT SWELLING [None]
  - RHEUMATOID ARTHRITIS [None]
  - AUTOIMMUNE DISORDER [None]
